FAERS Safety Report 9516597 (Version 1)
Quarter: 2013Q3

REPORT INFORMATION
  Report Type: Spontaneous
  Country: BE (occurrence: BE)
  Receive Date: 20130911
  Receipt Date: 20130911
  Transmission Date: 20140515
  Serious: Yes (Hospitalization, Other)
  Sender: FDA-Public Use
  Company Number: BE-ELI_LILLY_AND_COMPANY-BE201309001101

PATIENT
  Age: 69 Year
  Sex: Male

DRUGS (13)
  1. EFIENT [Suspect]
     Indication: THROMBOSIS PROPHYLAXIS
     Dosage: 5 MG, QD
     Route: 048
     Dates: start: 201210
  2. ONBREZ [Concomitant]
     Dosage: 150 MG, QD
     Route: 055
  3. SPIRIVA [Concomitant]
     Dosage: 18 UG, QD
     Route: 055
  4. BUDESONIDE [Concomitant]
     Dosage: UNK, BID
     Route: 055
  5. VENTOLIN                                /SCH/ [Concomitant]
     Dosage: UNK, PRN
     Route: 055
  6. SINTROM [Concomitant]
     Dosage: UNK
     Route: 048
  7. ZOCOR [Concomitant]
     Dosage: 40 MG, QD
     Route: 048
  8. ASAFLOW [Concomitant]
     Dosage: 80 MG, QD
  9. EMCONCOR [Concomitant]
     Dosage: 2.5 MG, QD
     Route: 048
  10. TRITACE [Concomitant]
     Dosage: 2.5 MG, QD
     Route: 048
  11. SEROXAT [Concomitant]
     Dosage: 20 MG, QD
     Route: 048
  12. CORDARONE [Concomitant]
     Dosage: 200 MG, QD
     Route: 048
  13. LYSOMUCIL [Concomitant]
     Dosage: 600 MG, QD
     Route: 048

REACTIONS (5)
  - Tongue injury [Unknown]
  - Anaemia [Unknown]
  - Angina pectoris [Unknown]
  - Dyspnoea [Unknown]
  - Asthenia [Unknown]
